FAERS Safety Report 20105129 (Version 1)
Quarter: 2021Q4

REPORT INFORMATION
  Report Type: Spontaneous
  Country: US (occurrence: US)
  Receive Date: 20211124
  Receipt Date: 20211124
  Transmission Date: 20220303
  Serious: Yes (Hospitalization, Other)
  Sender: FDA-Public Use
  Company Number: US-NOVOPROD-868502

PATIENT
  Age: 68 Year
  Sex: Male

DRUGS (1)
  1. SAXENDA [Suspect]
     Active Substance: LIRAGLUTIDE
     Indication: Type 2 diabetes mellitus
     Dosage: 3 MG, QD
     Route: 058
     Dates: start: 2019, end: 202102

REACTIONS (3)
  - Brain operation [Unknown]
  - Cerebrovascular accident [Unknown]
  - Product use in unapproved indication [Unknown]

NARRATIVE: CASE EVENT DATE: 20210301
